FAERS Safety Report 12787813 (Version 4)
Quarter: 2019Q2

REPORT INFORMATION
  Report Type: Report from Study
  Country: GT (occurrence: GT)
  Receive Date: 20160928
  Receipt Date: 20190514
  Transmission Date: 20190711
  Serious: Yes (Hospitalization, Other)
  Sender: FDA-Public Use
  Company Number: PHHY2016GT080481

PATIENT
  Age: 11 Year
  Sex: Female

DRUGS (3)
  1. EXJADE [Suspect]
     Active Substance: DEFERASIROX
     Indication: THALASSAEMIA
     Dosage: 250 MG, UNK
     Route: 065
  2. EXJADE [Suspect]
     Active Substance: DEFERASIROX
     Indication: SICKLE CELL ANAEMIA
     Dosage: 2 DF, QD
     Route: 048
     Dates: start: 201510, end: 201609
  3. CARBAMAZEPINE. [Suspect]
     Active Substance: CARBAMAZEPINE
     Indication: PAIN
     Route: 065

REACTIONS (17)
  - Haemoglobin decreased [Unknown]
  - Vomiting [Unknown]
  - Leukocytosis [Unknown]
  - White blood cell count decreased [Unknown]
  - Platelet count decreased [Unknown]
  - General physical health deterioration [Unknown]
  - Dizziness [Unknown]
  - Diarrhoea [Unknown]
  - Infection [Unknown]
  - Nausea [Unknown]
  - Haemolysis [Unknown]
  - Pain [Unknown]
  - Anaemia [Unknown]
  - Neck mass [Unknown]
  - Pyrexia [Unknown]
  - Depression [Unknown]
  - Pain in extremity [Unknown]
